FAERS Safety Report 17860678 (Version 2)
Quarter: 2020Q2

REPORT INFORMATION
  Report Type: Spontaneous
  Country: US (occurrence: US)
  Receive Date: 20200604
  Receipt Date: 20200610
  Transmission Date: 20200714
  Serious: No
  Sender: FDA-Public Use
  Company Number: US-SA-2020SA142437

PATIENT

DRUGS (1)
  1. KEVZARA [Suspect]
     Active Substance: SARILUMAB
     Indication: RHEUMATOID ARTHRITIS
     Dosage: 200 MG, QOW
     Route: 058
     Dates: start: 20200427

REACTIONS (4)
  - Alopecia [Unknown]
  - Stomatitis [Unknown]
  - Pain [Unknown]
  - Oral pain [Unknown]

NARRATIVE: CASE EVENT DATE: 2020
